FAERS Safety Report 13179154 (Version 2)
Quarter: 2017Q2

REPORT INFORMATION
  Report Type: Report from Study
  Country: US (occurrence: US)
  Receive Date: 20170202
  Receipt Date: 20170425
  Transmission Date: 20170830
  Serious: Yes (Other)
  Sender: FDA-Public Use
  Company Number: US-TEVA-735818USA

PATIENT
  Age: 22 Year
  Sex: Female

DRUGS (1)
  1. CLOZAPINE. [Suspect]
     Active Substance: CLOZAPINE
     Route: 048

REACTIONS (2)
  - Sinus tachycardia [Recovered/Resolved]
  - Granulocytopenia [Recovered/Resolved with Sequelae]

NARRATIVE: CASE EVENT DATE: 20170113
